FAERS Safety Report 14765595 (Version 5)
Quarter: 2019Q2

REPORT INFORMATION
  Report Type: Report from Study
  Country: CN (occurrence: CN)
  Receive Date: 20180416
  Receipt Date: 20190517
  Transmission Date: 20190711
  Serious: Yes (Hospitalization, Other)
  Sender: FDA-Public Use
  Company Number: PHHY2018CN024939

PATIENT
  Age: 49 Year
  Sex: Male
  Weight: 63 kg

DRUGS (34)
  1. PANTOPRAZOLE SODIUM. [Concomitant]
     Active Substance: PANTOPRAZOLE SODIUM
     Indication: GASTRITIS PROPHYLAXIS
     Dosage: 40 MG, QD
     Route: 042
     Dates: start: 20170130, end: 20180101
  2. BICYCLOL [Concomitant]
     Active Substance: BICYCLOL
     Indication: PRODUCT USED FOR UNKNOWN INDICATION
     Dosage: 50 MG, TID
     Route: 048
     Dates: start: 20180222
  3. PIPERACILLIN/TAZOBACTAM [Concomitant]
     Active Substance: PIPERACILLIN SODIUM\TAZOBACTAM SODIUM
     Indication: PRODUCT USED FOR UNKNOWN INDICATION
     Dosage: 14500 MG, BID
     Route: 042
     Dates: start: 20180209, end: 20180222
  4. SILIBININ [Concomitant]
     Active Substance: SILIBININ
     Indication: PRODUCT USED FOR UNKNOWN INDICATION
     Dosage: 70 MG, TID
     Route: 048
     Dates: start: 20180222
  5. MEGLUMINE ADENOSINE CYCLOPHOSPHATE [Concomitant]
     Active Substance: ADENOSINE CYCLIC PHOSPHATE MEGLUMINE
     Indication: CARDIOVASCULAR EVENT PROPHYLAXIS
     Dosage: 90 MG, QD
     Route: 042
     Dates: start: 20171216, end: 20171228
  6. BASILIXIMAB [Suspect]
     Active Substance: BASILIXIMAB
     Indication: RENAL TRANSPLANT
     Dosage: 20 MG, QD
     Route: 065
     Dates: start: 20171215, end: 20171215
  7. FK 506 [Concomitant]
     Active Substance: TACROLIMUS
     Dosage: 5 MG, QD
     Route: 065
     Dates: start: 20180413
  8. ALPROSTADIL. [Concomitant]
     Active Substance: ALPROSTADIL
     Indication: CARDIOVASCULAR INSUFFICIENCY
     Dosage: 10 UG, BID
     Route: 042
     Dates: start: 20171215, end: 20171231
  9. HYDROTALCITE [Concomitant]
     Active Substance: HYDROTALCITE
     Indication: PROPHYLAXIS AGAINST GASTROINTESTINAL ULCER
     Dosage: 1 DF, TID
     Route: 048
     Dates: start: 20180114, end: 20180217
  10. CASPOFUNGIN ACETATE. [Concomitant]
     Active Substance: CASPOFUNGIN ACETATE
     Indication: PRODUCT USED FOR UNKNOWN INDICATION
     Dosage: 50 MG, QD
     Route: 042
     Dates: start: 20180208, end: 20180223
  11. SULPHAMETHOXAZOLE [Concomitant]
     Active Substance: SULFAMETHOXAZOLE
     Indication: PRODUCT USED FOR UNKNOWN INDICATION
     Dosage: 2 DF, BID
     Route: 048
     Dates: start: 20180208, end: 20180209
  12. MYFORTIC [Suspect]
     Active Substance: MYCOPHENOLATE SODIUM
     Indication: RENAL TRANSPLANT
     Dosage: 540 MG, BID
     Route: 048
     Dates: start: 20171118
  13. PREDNISONE. [Concomitant]
     Active Substance: PREDNISONE
     Indication: PROPHYLAXIS AGAINST TRANSPLANT REJECTION
     Dosage: 5 MG, QD
     Route: 065
     Dates: start: 20180129
  14. PIPERACILLIN/TAZOBACTAM [Concomitant]
     Active Substance: PIPERACILLIN SODIUM\TAZOBACTAM SODIUM
     Indication: INFECTION PROPHYLAXIS
     Dosage: 20 MG, QD
     Route: 042
     Dates: start: 20171215, end: 20171230
  15. ALPROSTADIL. [Concomitant]
     Active Substance: ALPROSTADIL
     Dosage: 0.1 MG, BID
     Route: 042
     Dates: start: 20180208, end: 20180223
  16. BENAZEPRIL HYDROCHLORIDE. [Concomitant]
     Active Substance: BENAZEPRIL HYDROCHLORIDE
     Indication: BLOOD PRESSURE ABNORMAL
     Dosage: 10 MG, BID
     Route: 048
     Dates: start: 20171219, end: 20180116
  17. MONTMORILLONITE [Concomitant]
     Active Substance: MONTMORILLONITE
     Indication: PRODUCT USED FOR UNKNOWN INDICATION
     Dosage: 3000 MG, TID
     Route: 048
     Dates: start: 20180217, end: 20180219
  18. CLOPIDOGREL [Concomitant]
     Active Substance: CLOPIDOGREL BISULFATE
     Indication: PRODUCT USED FOR UNKNOWN INDICATION
     Dosage: 75 MG, QD
     Route: 048
     Dates: start: 20180413
  19. HEPARIN [Concomitant]
     Active Substance: HEPARIN SODIUM
     Indication: PRODUCT USED FOR UNKNOWN INDICATION
     Dosage: 5000 U, Q12H
     Route: 058
     Dates: start: 20180413, end: 20180416
  20. GANCICLOVIR. [Concomitant]
     Active Substance: GANCICLOVIR
     Dosage: 250 MG, TID
     Route: 042
     Dates: start: 20180222, end: 20180305
  21. DIPROPHYLLINE [Concomitant]
     Active Substance: DYPHYLLINE
     Indication: WHEEZING
     Dosage: 125 MG, BID
     Route: 042
     Dates: start: 20180211, end: 20180218
  22. MYFORTIC [Suspect]
     Active Substance: MYCOPHENOLATE SODIUM
     Dosage: 540 MG, BID
     Route: 048
     Dates: start: 20180109, end: 20180210
  23. COENZYME COMPLEX [Concomitant]
     Active Substance: UNSPECIFIED INGREDIENT
     Indication: PROPHYLAXIS
     Dosage: 400 IU, QD
     Route: 042
     Dates: start: 20171216, end: 20171228
  24. AMLODIPINE BESYLATE. [Concomitant]
     Active Substance: AMLODIPINE BESYLATE
     Indication: BLOOD PRESSURE ABNORMAL
     Dosage: 5 MG, BID
     Route: 048
     Dates: start: 20171219, end: 20180109
  25. HUMAN IMMUNOGLOBULIN [Concomitant]
     Active Substance: HUMAN IMMUNOGLOBULIN G
     Indication: IMMUNOMODULATORY THERAPY
     Dosage: 20000 MG, QD
     Route: 042
     Dates: start: 20180208, end: 20180214
  26. SULPHAMETHOXAZOLE [Concomitant]
     Active Substance: SULFAMETHOXAZOLE
     Dosage: 2 DF, BID
     Route: 048
     Dates: start: 20180209, end: 20180215
  27. MYFORTIC [Suspect]
     Active Substance: MYCOPHENOLATE SODIUM
     Dosage: 1080 MG, QD
     Route: 048
     Dates: start: 20180217
  28. FK 506 [Concomitant]
     Active Substance: TACROLIMUS
     Indication: PROPHYLAXIS AGAINST TRANSPLANT REJECTION
     Dosage: 4 MG, QD
     Route: 065
     Dates: start: 20180129
  29. PANTOPRAZOLE SODIUM. [Concomitant]
     Active Substance: PANTOPRAZOLE SODIUM
     Dosage: 40 MG, TID
     Route: 042
     Dates: start: 20180218, end: 20180221
  30. MYFORTIC [Suspect]
     Active Substance: MYCOPHENOLATE SODIUM
     Dosage: 1440 MG, QD
     Route: 048
     Dates: start: 20171215, end: 20180108
  31. SODIUM BICARBONATE. [Concomitant]
     Active Substance: SODIUM BICARBONATE
     Indication: PROPHYLAXIS
     Dosage: 1000 MG, TID
     Route: 048
     Dates: start: 20180208, end: 20180305
  32. AMBROXOL HYDROCHLORIDE [Concomitant]
     Active Substance: AMBROXOL HYDROCHLORIDE
     Indication: PRODUCTIVE COUGH
     Dosage: 15 MG, BID
     Route: 055
     Dates: start: 20180209, end: 20180218
  33. GANCICLOVIR. [Concomitant]
     Active Substance: GANCICLOVIR
     Indication: ANTIVIRAL TREATMENT
     Dosage: 250 MG, QD
     Route: 042
     Dates: start: 20180208, end: 20180209
  34. GLUTATHIONE [Concomitant]
     Active Substance: GLUTATHIONE
     Indication: PRODUCT USED FOR UNKNOWN INDICATION
     Dosage: 1800 MG, QD
     Route: 042
     Dates: start: 20180222, end: 20180305

REACTIONS (9)
  - Pneumonia [Recovered/Resolved]
  - Diarrhoea [Recovered/Resolved]
  - Drug-induced liver injury [Recovered/Resolved]
  - Blood glucose increased [Recovered/Resolved]
  - Renal artery stenosis [Recovered/Resolved]
  - Incision site pain [Recovered/Resolved]
  - Anaemia [Recovered/Resolved]
  - Diarrhoea [Recovered/Resolved]
  - Kidney transplant rejection [Recovered/Resolved]

NARRATIVE: CASE EVENT DATE: 20171216
